FAERS Safety Report 9544216 (Version 1)
Quarter: 2013Q3

REPORT INFORMATION
  Report Type: Spontaneous
  Country: US (occurrence: US)
  Receive Date: 20130923
  Receipt Date: 20130923
  Transmission Date: 20140515
  Serious: No
  Sender: FDA-Public Use
  Company Number: US-ASTRAZENECA-2013SE48427

PATIENT
  Sex: Female

DRUGS (3)
  1. LISINOPRIL [Suspect]
     Indication: HYPERTENSION
     Route: 048
  2. DIAZEPAM [Concomitant]
     Indication: DYSKINESIA
  3. DIAZEPAM [Concomitant]
     Indication: SLEEP DISORDER

REACTIONS (5)
  - Dyskinesia [Unknown]
  - Herpes zoster [Unknown]
  - Sleep disorder [Unknown]
  - Nausea [Unknown]
  - Intentional drug misuse [Unknown]
